FAERS Safety Report 21113459 (Version 6)
Quarter: 2025Q3

REPORT INFORMATION
  Report Type: Report from Study
  Country: CO (occurrence: CO)
  Receive Date: 20220721
  Receipt Date: 20250714
  Transmission Date: 20251021
  Serious: Yes (Hospitalization)
  Sender: NOVARTIS
  Company Number: CO-NOVARTISPH-NVSC2022CO165294

PATIENT
  Age: 58 Year
  Sex: Female
  Weight: 62 kg

DRUGS (6)
  1. ELTROMBOPAG OLAMINE [Suspect]
     Active Substance: ELTROMBOPAG OLAMINE
     Indication: Immune thrombocytopenia
     Dosage: 25 MG, QD
     Route: 048
     Dates: start: 20220427
  2. ELTROMBOPAG OLAMINE [Suspect]
     Active Substance: ELTROMBOPAG OLAMINE
     Dosage: 50 MG, QD (TWO TABLETS OF 25 MG)
     Route: 048
  3. ELTROMBOPAG OLAMINE [Suspect]
     Active Substance: ELTROMBOPAG OLAMINE
     Dosage: 75 MG, QD
     Route: 048
     Dates: start: 20220616
  4. ELTROMBOPAG OLAMINE [Suspect]
     Active Substance: ELTROMBOPAG OLAMINE
     Dosage: 75 MG, QD
     Route: 048
  5. ELTROMBOPAG OLAMINE [Suspect]
     Active Substance: ELTROMBOPAG OLAMINE
     Dosage: 50 MG, QD (2 TABLETS OF 25 MG)
     Route: 048
  6. ELTROMBOPAG OLAMINE [Suspect]
     Active Substance: ELTROMBOPAG OLAMINE
     Dosage: 75 MG, QD
     Route: 048

REACTIONS (9)
  - Petechiae [Unknown]
  - Platelet count decreased [Unknown]
  - Asthenia [Recovered/Resolved]
  - Headache [Recovered/Resolved]
  - Platelet count abnormal [Unknown]
  - Conjunctivitis [Unknown]
  - Blood cholesterol increased [Unknown]
  - Arthralgia [Unknown]
  - Back pain [Unknown]

NARRATIVE: CASE EVENT DATE: 20220401
